FAERS Safety Report 11318888 (Version 7)
Quarter: 2015Q4

REPORT INFORMATION
  Report Type: Spontaneous
  Country: US (occurrence: US)
  Receive Date: 20150729
  Receipt Date: 20151222
  Transmission Date: 20160304
  Serious: Yes (Hospitalization)
  Sender: FDA-Public Use
  Company Number: US-ACTELION PHARMACEUTICALS US, INC.-A-NJ2015-118241

PATIENT
  Age: 42 Year
  Sex: Female
  Weight: 81.18 kg

DRUGS (4)
  1. OPSUMIT [Suspect]
     Active Substance: MACITENTAN
     Indication: PULMONARY ARTERIAL HYPERTENSION
     Dosage: 10 MG, QD
     Route: 048
     Dates: start: 20141210
  2. TYVASO [Concomitant]
     Active Substance: TREPROSTINIL
  3. REVATIO [Concomitant]
     Active Substance: SILDENAFIL CITRATE
  4. REMODULIN [Concomitant]
     Active Substance: TREPROSTINIL

REACTIONS (16)
  - Nausea [Unknown]
  - Bacterial infection [Unknown]
  - Dyspnoea exertional [Unknown]
  - Medical device removal [Unknown]
  - Device related infection [Unknown]
  - Catheter site inflammation [Unknown]
  - Device dislocation [Unknown]
  - Catheter site infection [Unknown]
  - Weight increased [Unknown]
  - Catheter site erythema [Unknown]
  - Medical device change [Unknown]
  - Sepsis [Unknown]
  - Catheter site haemorrhage [Unknown]
  - Rash [Unknown]
  - Staphylococcal infection [Unknown]
  - Medical device complication [Unknown]
